FAERS Safety Report 20262666 (Version 1)
Quarter: 2021Q4

REPORT INFORMATION
  Report Type: Report from Study
  Country: BR (occurrence: BR)
  Receive Date: 20211231
  Receipt Date: 20211231
  Transmission Date: 20220304
  Serious: Yes (Death)
  Sender: FDA-Public Use
  Company Number: BR-JNJFOC-20211261658

PATIENT
  Sex: Male
  Weight: 64 kg

DRUGS (1)
  1. INFLIXIMAB [Suspect]
     Active Substance: INFLIXIMAB
     Indication: Crohn^s disease
     Dosage: THERAPY END DATE WAS ON AUG-2021.
     Route: 042
     Dates: start: 20130318

REACTIONS (1)
  - Gastrointestinal carcinoma [Fatal]
